FAERS Safety Report 4661353-2 (Version None)
Quarter: 2005Q2

REPORT INFORMATION
  Report Type: 
  Country: None (occurrence: None)
  Receive Date: 20050427
  Receipt Date: 20050218
  Transmission Date: 20051028
  Serious: No
  Sender: FDA-Public Use
  Company Number: 212563

PATIENT
  Age: 33 Year
  Sex: Male

DRUGS (1)
  1. XOLAIR [Suspect]
     Indication: ASTHMA
     Dosage: 300 MG, Q2W, SUBCUTANEOUS
     Route: 058
     Dates: start: 20041206, end: 20050215

REACTIONS (3)
  - ARTHRALGIA [None]
  - POOR PERIPHERAL CIRCULATION [None]
  - SENSATION OF HEAVINESS [None]
